FAERS Safety Report 10397286 (Version 1)
Quarter: 2014Q3

REPORT INFORMATION
  Report Type: Spontaneous
  Country: US (occurrence: None)
  Receive Date: 20140819
  Receipt Date: 20140819
  Transmission Date: 20150326
  Serious: Yes (Other)
  Sender: FDA-Public Use
  Company Number: None

PATIENT
  Age: 71 Year
  Sex: Female
  Weight: 70.31 kg

DRUGS (1)
  1. QVAR [Suspect]
     Active Substance: BECLOMETHASONE DIPROPIONATE
     Indication: ASTHMA
     Dosage: 1 PUFFS 1X DAY TWICE DAILY TAKEN BY MOUTH
     Route: 048
     Dates: start: 20140527, end: 20140818

REACTIONS (2)
  - Product packaging quantity issue [None]
  - Cough [None]

NARRATIVE: CASE EVENT DATE: 20140817
